FAERS Safety Report 11348387 (Version 1)
Quarter: 2015Q3

REPORT INFORMATION
  Report Type: Spontaneous
  Country: US (occurrence: US)
  Receive Date: 20150806
  Receipt Date: 20150806
  Transmission Date: 20151125
  Serious: No
  Sender: FDA-Public Use
  Company Number: ALCN2015US004634

PATIENT
  Sex: Male

DRUGS (1)
  1. EYE STREAM [Suspect]
     Active Substance: WATER
     Indication: PRODUCT USED FOR UNKNOWN INDICATION
     Route: 047

REACTIONS (4)
  - Eye irritation [Unknown]
  - Wrong technique in product usage process [Unknown]
  - Eyelid oedema [Unknown]
  - Ocular hyperaemia [Unknown]
